FAERS Safety Report 8060558-0 (Version None)
Quarter: 2012Q1

REPORT INFORMATION
  Report Type: 
  Country: None (occurrence: None)
  Receive Date: 20120120
  Receipt Date: 20120112
  Transmission Date: 20120608
  Serious: Yes (Disabling)
  Sender: FDA-Public Use
  Company Number: CHPA2011FR018326

PATIENT
  Sex: Female
  Weight: 52 kg

DRUGS (1)
  1. SCOPOLAMINE [Suspect]
     Indication: VOMITING
     Dosage: 0.5 DF, UNK
     Dates: start: 20111215, end: 20111219

REACTIONS (3)
  - OFF LABEL USE [None]
  - WRONG TECHNIQUE IN DRUG USAGE PROCESS [None]
  - ABASIA [None]
